FAERS Safety Report 7828658-5 (Version None)
Quarter: 2011Q4

REPORT INFORMATION
  Report Type: 
  Country: None (occurrence: None)
  Receive Date: 20111020
  Receipt Date: 20111011
  Transmission Date: 20120403
  Serious: Yes (Hospitalization)
  Sender: FDA-Public Use
  Company Number: DE-JNJFOC-20100801844

PATIENT
  Sex: Male
  Weight: 21.7 kg

DRUGS (6)
  1. PREDNISONE [Concomitant]
  2. REMICADE [Suspect]
     Indication: CROHN'S DISEASE
     Route: 042
     Dates: start: 20100528
  3. MESALAMINE [Concomitant]
     Route: 048
  4. BUDESONIDE [Concomitant]
  5. REMICADE [Suspect]
     Route: 042
     Dates: start: 20100709
  6. CALCIUM CARBONATE [Concomitant]

REACTIONS (2)
  - CROHN'S DISEASE [None]
  - CYTOMEGALOVIRUS INFECTION [None]
